FAERS Safety Report 23245286 (Version 1)
Quarter: 2023Q4

REPORT INFORMATION
  Report Type: Spontaneous
  Country: FR (occurrence: FR)
  Receive Date: 20231130
  Receipt Date: 20231130
  Transmission Date: 20240110
  Serious: Yes (Hospitalization)
  Sender: FDA-Public Use
  Company Number: None

PATIENT
  Age: 66 Year
  Sex: Female
  Weight: 66 kg

DRUGS (3)
  1. VEMURAFENIB [Suspect]
     Active Substance: VEMURAFENIB
     Indication: Malignant melanoma
     Route: 065
     Dates: start: 20121001, end: 20231016
  2. COBIMETINIB [Suspect]
     Active Substance: COBIMETINIB
     Indication: Malignant melanoma
     Dosage: 21 DAYS A WEEK
     Route: 065
     Dates: start: 20160112, end: 20231016
  3. LEVOTHYROXINE [Concomitant]
     Active Substance: LEVOTHYROXINE
     Indication: Hypothyroidism

REACTIONS (2)
  - Cutaneous vasculitis [Not Recovered/Not Resolved]
  - Left ventricular failure [Recovered/Resolved]

NARRATIVE: CASE EVENT DATE: 20231001
